FAERS Safety Report 7059491-2 (Version None)
Quarter: 2010Q4

REPORT INFORMATION
  Report Type: 
  Country: None (occurrence: None)
  Receive Date: 20101025
  Receipt Date: 20101011
  Transmission Date: 20110411
  Serious: Yes (Hospitalization)
  Sender: FDA-Public Use
  Company Number: DE-CELGENEUS-062-50794-10101597

PATIENT
  Age: 74 Year
  Sex: Male

DRUGS (2)
  1. VIDAZA [Suspect]
     Route: 058
  2. VALPROIC ACID [Suspect]
     Route: 065

REACTIONS (8)
  - DEHYDRATION [None]
  - DELIRIUM [None]
  - DISEASE PROGRESSION [None]
  - DRUG INTOLERANCE [None]
  - PANCYTOPENIA [None]
  - PYREXIA [None]
  - RENAL FAILURE [None]
  - VENOUS THROMBOSIS [None]
